FAERS Safety Report 10255884 (Version 1)
Quarter: 2014Q2

REPORT INFORMATION
  Report Type: Spontaneous
  Country: DK (occurrence: DK)
  Receive Date: 20140624
  Receipt Date: 20140624
  Transmission Date: 20141212
  Serious: Yes (Other)
  Sender: FDA-Public Use
  Company Number: DK-WATSON-2014-13240

PATIENT
  Age: 27 Year
  Sex: Female

DRUGS (1)
  1. LAMOTRIGINE (UNKNOWN) [Suspect]
     Indication: EPILEPSY
     Dosage: UNK
     Route: 065

REACTIONS (1)
  - Convulsion [Unknown]
